FAERS Safety Report 15348747 (Version 1)
Quarter: 2018Q3

REPORT INFORMATION
  Report Type: Spontaneous
  Country: DE (occurrence: DE)
  Receive Date: 20180904
  Receipt Date: 20180904
  Transmission Date: 20181010
  Serious: Yes (Life-Threatening, Other)
  Sender: FDA-Public Use
  Company Number: DE-EMD SERONO-E2B_90057292

PATIENT
  Age: 26 Year
  Sex: Male
  Weight: 78 kg

DRUGS (5)
  1. CEFACLOR. [Concomitant]
     Active Substance: CEFACLOR
     Indication: NASOPHARYNGITIS
  2. PARACETAMOL?RATIOPHARM [Concomitant]
     Indication: TONSILLITIS
     Route: 048
     Dates: start: 20180809, end: 20180812
  3. PARACETAMOL?RATIOPHARM [Concomitant]
     Indication: NASOPHARYNGITIS
  4. CEFACLOR. [Concomitant]
     Active Substance: CEFACLOR
     Indication: TONSILLITIS
     Route: 048
     Dates: start: 20180811, end: 20180813
  5. REBIF [Suspect]
     Active Substance: INTERFERON BETA-1A
     Indication: MULTIPLE SCLEROSIS
     Route: 058
     Dates: start: 201709, end: 20180806

REACTIONS (4)
  - Agranulocytosis [Recovered/Resolved]
  - Influenza like illness [Unknown]
  - Middle East respiratory syndrome [Recovered/Resolved]
  - Sepsis [Recovered/Resolved]

NARRATIVE: CASE EVENT DATE: 20180812
